FAERS Safety Report 12676304 (Version 1)
Quarter: 2016Q3

REPORT INFORMATION
  Report Type: Spontaneous
  Country: US (occurrence: US)
  Receive Date: 20160823
  Receipt Date: 20160823
  Transmission Date: 20161109
  Serious: No
  Sender: FDA-Public Use
  Company Number: US-PFIZER INC-2016395337

PATIENT
  Age: 69 Year
  Sex: Female

DRUGS (3)
  1. AZATHIOPRINE. [Suspect]
     Active Substance: AZATHIOPRINE
     Indication: VASCULITIS
     Dosage: 50 MG, 3X/DAY
     Route: 048
  2. CELECOXIB. [Suspect]
     Active Substance: CELECOXIB
     Dosage: 200 MG, 2X/DAY
     Route: 048
     Dates: start: 2016
  3. CELECOXIB. [Suspect]
     Active Substance: CELECOXIB
     Indication: VASCULITIS
     Dosage: 200 MG, DAILY (QD)
     Route: 048
     Dates: end: 2016

REACTIONS (2)
  - Drug ineffective [Not Recovered/Not Resolved]
  - Fatigue [Not Recovered/Not Resolved]
